FAERS Safety Report 4894239-9 (Version None)
Quarter: 2006Q1

REPORT INFORMATION
  Report Type: 
  Country: None (occurrence: None)
  Receive Date: 20060127
  Receipt Date: 20051104
  Transmission Date: 20060701
  Serious: No
  Sender: FDA-Public Use
  Company Number: US-GLAXOSMITHKLINE-A0581998A

PATIENT
  Age: 40 Year
  Sex: Female

DRUGS (4)
  1. WELLBUTRIN [Suspect]
     Indication: DEPRESSION
     Dosage: 100MG FOUR TIMES PER DAY
     Route: 048
  2. B12 [Concomitant]
  3. FLU VACCINE [Concomitant]
  4. CONCURRENT MEDICATIONS [Concomitant]

REACTIONS (1)
  - DRUG INEFFECTIVE [None]
